FAERS Safety Report 20805184 (Version 2)
Quarter: 2022Q2

REPORT INFORMATION
  Report Type: Report from Study
  Country: US (occurrence: US)
  Receive Date: 20220509
  Receipt Date: 20220517
  Transmission Date: 20220720
  Serious: Yes (Other)
  Sender: FDA-Public Use
  Company Number: US-ABBVIE-22K-163-4385749-00

PATIENT
  Sex: Female

DRUGS (3)
  1. RINVOQ [Suspect]
     Active Substance: UPADACITINIB
     Indication: Rheumatoid arthritis
     Route: 048
     Dates: end: 2022
  2. MODERNA COVID-19 VACCINE [Concomitant]
     Active Substance: ELASOMERAN
     Indication: COVID-19 immunisation
     Dosage: FIRST DOSE
     Route: 030
     Dates: start: 20210506, end: 20210506
  3. MODERNA COVID-19 VACCINE [Concomitant]
     Active Substance: ELASOMERAN
     Dosage: SECOND DOSE
     Route: 030
     Dates: start: 20210601, end: 20210601

REACTIONS (7)
  - Surgery [Recovered/Resolved]
  - Bronchitis [Unknown]
  - Joint swelling [Not Recovered/Not Resolved]
  - Arthralgia [Unknown]
  - Inflammatory marker increased [Unknown]
  - Upper respiratory tract infection [Recovered/Resolved]
  - Oral candidiasis [Unknown]

NARRATIVE: CASE EVENT DATE: 20220101
